FAERS Safety Report 10723039 (Version 1)
Quarter: 2015Q1

REPORT INFORMATION
  Report Type: Spontaneous
  Country: FR (occurrence: None)
  Receive Date: 20150114
  Receipt Date: 20150114
  Transmission Date: 20150721
  Serious: Yes (Hospitalization)
  Sender: FDA-Public Use
  Company Number: 2015ST000002

PATIENT
  Age: 54 Year
  Sex: Male
  Weight: 70 kg

DRUGS (2)
  1. PRETERAX (INDAPAMIDE, PERINDOPRIL ERBUMINE) [Concomitant]
  2. FENOFIBRATE (FENOFIBRATE) [Suspect]
     Active Substance: FENOFIBRATE
     Indication: HYPERCHOLESTEROLAEMIA
     Route: 048
     Dates: start: 201007, end: 20100923

REACTIONS (15)
  - Lymphadenopathy [None]
  - Rash maculo-papular [None]
  - Skin plaque [None]
  - Skin lesion [None]
  - Cough [None]
  - Gamma-glutamyltransferase increased [None]
  - Drug reaction with eosinophilia and systemic symptoms [None]
  - Aspartate aminotransferase increased [None]
  - Eosinophilia [None]
  - Swelling face [None]
  - Hyperthermia [None]
  - Blood alkaline phosphatase increased [None]
  - Alanine aminotransferase increased [None]
  - Skin exfoliation [None]
  - Leukocytosis [None]

NARRATIVE: CASE EVENT DATE: 20100916
